FAERS Safety Report 6612224-3 (Version None)
Quarter: 2010Q1

REPORT INFORMATION
  Report Type: 
  Country: None (occurrence: None)
  Receive Date: 20100303
  Receipt Date: 20100104
  Transmission Date: 20100710
  Serious: Yes (Other)
  Sender: FDA-Public Use
  Company Number: IL-AMGEN-QUU395478

PATIENT
  Sex: Female

DRUGS (6)
  1. NEULASTIM [Suspect]
     Indication: CHEMOTHERAPY
  2. RITUXIMAB [Concomitant]
  3. CYCLOPHOSPHAMIDE [Concomitant]
  4. VINCRISTINE [Concomitant]
  5. PREDNISONE TAB [Concomitant]
  6. DOXORUBICIN HCL [Concomitant]

REACTIONS (3)
  - DIZZINESS [None]
  - HYPERSENSITIVITY [None]
  - PRESYNCOPE [None]
